FAERS Safety Report 5583857-0 (Version None)
Quarter: 2008Q1

REPORT INFORMATION
  Report Type: 
  Country: None (occurrence: None)
  Receive Date: 20080108
  Receipt Date: 20071004
  Transmission Date: 20080703
  Serious: No
  Sender: FDA-Public Use
  Company Number: US-KINGPHARMUSA00001-K200701297

PATIENT

DRUGS (1)
  1. SILVADENE CREAM 1% [Suspect]
     Indication: THERMAL BURN
     Dosage: UNK, SINGLE
     Route: 061
     Dates: start: 20070901, end: 20070901

REACTIONS (2)
  - EXPIRED DRUG ADMINISTERED [None]
  - NO ADVERSE EVENT [None]
